FAERS Safety Report 7347595-6 (Version None)
Quarter: 2011Q1

REPORT INFORMATION
  Report Type: 
  Country: None (occurrence: None)
  Receive Date: 20110218
  Receipt Date: 20100104
  Transmission Date: 20110831
  Serious: Yes (Other)
  Sender: FDA-Public Use
  Company Number: CART-1000033

PATIENT
  Sex: Female

DRUGS (1)
  1. CARTICEL [Suspect]
     Indication: CARTILAGE INJURY
     Dosage: ONCE, INTRA-ARTICULAR
     Route: 014
     Dates: start: 20070417, end: 20070417

REACTIONS (3)
  - GRAFT OVERGROWTH [None]
  - ARTHRALGIA [None]
  - JOINT STIFFNESS [None]
